FAERS Safety Report 10233321 (Version 1)
Quarter: 2014Q2

REPORT INFORMATION
  Report Type: Spontaneous
  Country: DK (occurrence: DK)
  Receive Date: 20140612
  Receipt Date: 20140612
  Transmission Date: 20141212
  Serious: Yes (Other)
  Sender: FDA-Public Use
  Company Number: DK-ACTAVIS-2014-11989

PATIENT
  Age: 77 Year
  Sex: Female
  Weight: 53 kg

DRUGS (1)
  1. PACLITAXEL ACTAVIS [Suspect]
     Indication: OVARIAN CANCER
     Dosage: 125.6 MG, 1/WEEK (6MG/ML)
     Route: 042
     Dates: start: 20140502, end: 20140502

REACTIONS (1)
  - Back pain [Recovered/Resolved]
